FAERS Safety Report 8224741-3 (Version None)
Quarter: 2012Q1

REPORT INFORMATION
  Report Type: 
  Country: None (occurrence: None)
  Receive Date: 20120321
  Receipt Date: 20120313
  Transmission Date: 20120608
  Serious: Yes (Death)
  Sender: FDA-Public Use
  Company Number: US-FRI-1000028705

PATIENT
  Sex: Female

DRUGS (2)
  1. CELEXA [Suspect]
  2. FENTANYL [Suspect]
     Dosage: 175 MCG EVERY 3 DAYS

REACTIONS (1)
  - MULTIPLE DRUG OVERDOSE [None]
